FAERS Safety Report 16077715 (Version 1)
Quarter: 2019Q1

REPORT INFORMATION
  Report Type: Spontaneous
  Country: US (occurrence: US)
  Receive Date: 20190214
  Receipt Date: 20190214
  Transmission Date: 20190418
  Serious: Yes (Other)
  Sender: FDA-Public Use
  Company Number: None

PATIENT
  Age: 43 Year
  Sex: Female

DRUGS (1)
  1. CARBAMAZEPINE. [Suspect]
     Active Substance: CARBAMAZEPINE

REACTIONS (2)
  - Product substitution issue [None]
  - Seizure [None]

NARRATIVE: CASE EVENT DATE: 199103
